FAERS Safety Report 14601582 (Version 1)
Quarter: 2018Q1

REPORT INFORMATION
  Report Type: Spontaneous
  Country: PT (occurrence: PT)
  Receive Date: 20180306
  Receipt Date: 20180306
  Transmission Date: 20180509
  Serious: Yes (Other)
  Sender: FDA-Public Use
  Company Number: PT-BAXTER-2018BAX006142

PATIENT
  Age: 47 Year
  Sex: Male

DRUGS (2)
  1. CETOROLAC DE TROMETAMINA 30 MG/ML SOLU??O INJET?VEL [Suspect]
     Active Substance: KETOROLAC TROMETHAMINE
     Indication: PRODUCT USED FOR UNKNOWN INDICATION
     Dosage: IN THE EMERGENCY ROOMS
     Route: 065
     Dates: start: 201506, end: 201506
  2. AMLODIPINA + TELMISARTAN [Concomitant]
     Active Substance: AMLODIPINE\TELMISARTAN
     Indication: HYPERTENSION
     Route: 048

REACTIONS (2)
  - Angioedema [Recovered/Resolved]
  - Eyelid oedema [None]

NARRATIVE: CASE EVENT DATE: 201506
